FAERS Safety Report 13844735 (Version 3)
Quarter: 2017Q3

REPORT INFORMATION
  Report Type: Spontaneous
  Country: US (occurrence: US)
  Receive Date: 20170808
  Receipt Date: 20170929
  Transmission Date: 20171127
  Serious: Yes (Other)
  Sender: FDA-Public Use
  Company Number: US-PFIZER INC-2017342769

PATIENT
  Age: 46 Year
  Sex: Female

DRUGS (1)
  1. PRISTIQ EXTENDED-RELEASE [Suspect]
     Active Substance: DESVENLAFAXINE SUCCINATE
     Indication: BIPOLAR DISORDER
     Dosage: 50 MG, 1X/DAY
     Route: 048

REACTIONS (5)
  - Crying [Unknown]
  - Emotional disorder [Unknown]
  - Intentional product misuse [Unknown]
  - Suicidal ideation [Unknown]
  - Hostility [Unknown]
